FAERS Safety Report 20701786 (Version 1)
Quarter: 2022Q2

REPORT INFORMATION
  Report Type: Spontaneous
  Country: CN (occurrence: CN)
  Receive Date: 20220412
  Receipt Date: 20220412
  Transmission Date: 20220721
  Serious: Yes (Life-Threatening, Other)
  Sender: FDA-Public Use
  Company Number: CN-BRACCO-2022CN01356

PATIENT
  Age: 59 Year
  Sex: Male

DRUGS (1)
  1. IOPAMIDOL [Suspect]
     Active Substance: IOPAMIDOL
     Indication: Angiocardiogram
     Dosage: 37 G, SINGLE
     Route: 042
     Dates: start: 20220324, end: 20220324

REACTIONS (4)
  - Blood pressure decreased [Recovering/Resolving]
  - Rash [Recovering/Resolving]
  - Ventricular tachycardia [Recovering/Resolving]
  - Anaphylactic shock [Recovering/Resolving]

NARRATIVE: CASE EVENT DATE: 20220324
